FAERS Safety Report 9205854 (Version 1)
Quarter: 2013Q2

REPORT INFORMATION
  Report Type: Spontaneous
  Country: US (occurrence: None)
  Receive Date: 20130401
  Receipt Date: 20130401
  Transmission Date: 20140414
  Serious: Yes (Disabling, Other)
  Sender: FDA-Public Use
  Company Number: ACO_35025_2013

PATIENT
  Age: 59 Year
  Sex: Male

DRUGS (1)
  1. AMPYRA (DALFAMPRIDINE) TABLET, 10 MG [Suspect]
     Indication: GAIT DISTURBANCE
     Route: 048
     Dates: start: 20110401, end: 2013

REACTIONS (1)
  - Abasia [None]
